FAERS Safety Report 9233046 (Version 1)
Quarter: 2013Q1

REPORT INFORMATION
  Report Type: Spontaneous
  Country: US (occurrence: None)
  Receive Date: 20121031
  Receipt Date: 20121031
  Transmission Date: 20140127
  Serious: No
  Sender: FDA-Public Use
  Company Number: PHEH2012US012221

PATIENT
  Age: 43 Year
  Sex: Female

DRUGS (5)
  1. GILENYA (FTY) CAPSULE, 0.5MG [Suspect]
     Route: 048
  2. CARBAMAZEPINE (CARBAMAZEPINE) [Concomitant]
  3. GABAPENTIN (GABAPENTIN) [Concomitant]
  4. FAMPRIDINE (FAMPRIDINE) [Concomitant]
  5. SYNTHROID (LEVOTHYROXINE SODIUM) [Concomitant]

REACTIONS (2)
  - Pruritus [None]
  - Dermatitis contact [None]
